FAERS Safety Report 12885598 (Version 1)
Quarter: 2016Q4

REPORT INFORMATION
  Report Type: Spontaneous
  Country: DK (occurrence: DK)
  Receive Date: 20161026
  Receipt Date: 20161026
  Transmission Date: 20170207
  Serious: Yes (Other)
  Sender: FDA-Public Use
  Company Number: DK-ROCHE-1523987

PATIENT
  Age: 82 Year
  Sex: Female
  Weight: 82 kg

DRUGS (3)
  1. BONDRONAT [Suspect]
     Active Substance: IBANDRONIC ACID
     Indication: OSTEOPOROSIS
     Dosage: STYRKE: 50 MG
     Route: 048
     Dates: start: 20110510
  2. BONDRONAT [Suspect]
     Active Substance: IBANDRONIC ACID
     Indication: METASTASES TO BONE
  3. LETROZOL [Concomitant]
     Active Substance: LETROZOLE
     Indication: BREAST CANCER
     Route: 048
     Dates: start: 20130408

REACTIONS (9)
  - Infection [Unknown]
  - Pain [Unknown]
  - Swelling [Unknown]
  - Bone disorder [Recovered/Resolved]
  - Osteonecrosis of jaw [Recovered/Resolved]
  - Device loosening [Recovered/Resolved]
  - Ulcer [Unknown]
  - Purulence [Unknown]
  - Paraesthesia [Unknown]

NARRATIVE: CASE EVENT DATE: 201404
